FAERS Safety Report 5019634-9 (Version None)
Quarter: 2006Q2

REPORT INFORMATION
  Report Type: 
  Country: None (occurrence: None)
  Receive Date: 20060601
  Receipt Date: 20060522
  Transmission Date: 20061013
  Serious: Yes (Life-Threatening, Hospitalization)
  Sender: FDA-Public Use
  Company Number: HQWYE3581516MAR06

PATIENT
  Age: 56 Year
  Sex: Female

DRUGS (3)
  1. MYLOTARG [Suspect]
     Indication: ACUTE MYELOID LEUKAEMIA RECURRENT
     Dosage: A SINGLE 7 MG/M^2 DOSE INTRAVENOUS DRIP
     Route: 041
     Dates: start: 20060124, end: 20060124
  2. ROXATIDINE ACETATE HCL [Concomitant]
  3. MAG-LAX (MAGNESIUM HYDROXIDE/PARAFIN, LIQUID) [Concomitant]

REACTIONS (14)
  - ANAEMIA [None]
  - BLAST CELL COUNT INCREASED [None]
  - BLOOD ALKALINE PHOSPHATASE INCREASED [None]
  - BLOOD LACTATE DEHYDROGENASE INCREASED [None]
  - C-REACTIVE PROTEIN INCREASED [None]
  - COAGULATION FACTOR XIII LEVEL DECREASED [None]
  - CONDITION AGGRAVATED [None]
  - DISEASE PROGRESSION [None]
  - FEBRILE NEUTROPENIA [None]
  - FIBRIN DEGRADATION PRODUCTS INCREASED [None]
  - GAMMA-GLUTAMYLTRANSFERASE INCREASED [None]
  - GASTROINTESTINAL HAEMORRHAGE [None]
  - PERFORMANCE STATUS DECREASED [None]
  - WHITE BLOOD CELL COUNT DECREASED [None]
